FAERS Safety Report 19815239 (Version 1)
Quarter: 2021Q3

REPORT INFORMATION
  Report Type: Spontaneous
  Country: FR (occurrence: FR)
  Receive Date: 20210909
  Receipt Date: 20210909
  Transmission Date: 20211014
  Serious: Yes (Other)
  Sender: FDA-Public Use
  Company Number: FR-BRISTOL-MYERS SQUIBB COMPANY-BMS-2021-087101

PATIENT
  Age: 65 Year
  Sex: Female

DRUGS (2)
  1. FENUGREEK [TRIGONELLA FOENUM?GRAECUM] [Concomitant]
     Active Substance: FENUGREEK LEAF\HERBALS
     Indication: PRODUCT USED FOR UNKNOWN INDICATION
     Dosage: UNK
     Route: 065
  2. KENACORT [Suspect]
     Active Substance: TRIAMCINOLONE
     Indication: OSTEOARTHRITIS
     Dosage: 80 UNK
     Route: 065

REACTIONS (12)
  - Hernia [Unknown]
  - Diabetes mellitus [Unknown]
  - Eczema [Unknown]
  - Alopecia [Unknown]
  - Haemorrhage [Unknown]
  - Walking disability [Unknown]
  - Obesity [Unknown]
  - Diarrhoea [Unknown]
  - Cardiac murmur [Unknown]
  - Urinary incontinence [Unknown]
  - Peripheral swelling [Unknown]
  - Balance disorder [Unknown]
